FAERS Safety Report 5815315-X (Version None)
Quarter: 2008Q3

REPORT INFORMATION
  Report Type: 
  Country: None (occurrence: None)
  Receive Date: 20080718
  Receipt Date: 20080709
  Transmission Date: 20090109
  Serious: Yes (Death)
  Sender: FDA-Public Use
  Company Number: JP-WYE-H04538108

PATIENT
  Sex: Male
  Weight: 55 kg

DRUGS (12)
  1. ANCARON [Suspect]
     Indication: ARRHYTHMIA
     Route: 048
     Dates: start: 20080520, end: 20080523
  2. TORSEMIDE [Concomitant]
     Route: 048
  3. ALLOPURINOL [Concomitant]
     Route: 048
  4. FLUITRAN [Concomitant]
     Route: 048
  5. LOXONIN [Concomitant]
  6. ACARDI [Concomitant]
     Route: 048
  7. TANATRIL [Concomitant]
     Route: 048
  8. CARVEDILOL [Concomitant]
     Route: 048
  9. SELBEX [Concomitant]
  10. LASIX [Concomitant]
     Route: 048
  11. LANIRAPID [Concomitant]
     Route: 048
  12. WARFARIN SODIUM [Concomitant]
     Dosage: UNKNOWN
     Route: 048

REACTIONS (3)
  - BRADYCARDIA [None]
  - CARDIAC FAILURE [None]
  - VENTRICULAR FIBRILLATION [None]
